FAERS Safety Report 6006434-6 (Version None)
Quarter: 2008Q4

REPORT INFORMATION
  Report Type: 
  Country: None (occurrence: None)
  Receive Date: 20081217
  Receipt Date: 20080110
  Transmission Date: 20090506
  Serious: No
  Sender: FDA-Public Use
  Company Number: US-AMGEN-KDL258636

PATIENT
  Sex: Female
  Weight: 90.8 kg

DRUGS (2)
  1. ENBREL [Suspect]
     Indication: PSORIASIS
     Route: 058
     Dates: start: 20071129
  2. ENBREL [Suspect]
     Indication: PSORIATIC ARTHROPATHY

REACTIONS (6)
  - CHILLS [None]
  - EAR PAIN [None]
  - OROPHARYNGEAL PAIN [None]
  - PAIN [None]
  - PARANASAL SINUS HYPERSECRETION [None]
  - SINUSITIS [None]
